FAERS Safety Report 4596840-9 (Version None)
Quarter: 2005Q1

REPORT INFORMATION
  Report Type: 
  Country: None (occurrence: None)
  Receive Date: 20050225
  Receipt Date: 20050211
  Transmission Date: 20050727
  Serious: Yes (Congenital Anomaly)
  Sender: FDA-Public Use
  Company Number: US-2005-001849

PATIENT

DRUGS (1)
  1. BETASERON [Suspect]
     Indication: DRUG EXPOSURE DURING PREGNANCY
     Dosage: EVERY 2D, INTRA-AMNIOTIC
     Route: 064
     Dates: start: 20020624, end: 20031225

REACTIONS (2)
  - DRUG EXPOSURE DURING PREGNANCY [None]
  - SYNDACTYLY [None]
